FAERS Safety Report 19489095 (Version 2)
Quarter: 2021Q3

REPORT INFORMATION
  Report Type: Spontaneous
  Country: DE (occurrence: DE)
  Receive Date: 20210703
  Receipt Date: 20210723
  Transmission Date: 20211014
  Serious: Yes (Other)
  Sender: FDA-Public Use
  Company Number: DE-TEVA-2021-DE-1928266

PATIENT
  Sex: Male

DRUGS (9)
  1. RATIOPHARM VITAMIN B1 [Interacting]
     Active Substance: THIAMINE HYDROCHLORIDE
     Indication: MUSCLE DISCOMFORT
     Dosage: HAS BEEN TAKEN FOR SOME TIME , 200 MG?VITAMIN B1?RATIOPHARM 200 MG TABLETTEN
  2. CORTISON [Concomitant]
     Active Substance: CORTISONE ACETATE
     Indication: POLYMYALGIA RHEUMATICA
  3. PANTOPRAZOL [Interacting]
     Active Substance: PANTOPRAZOLE SODIUM
     Indication: GASTROOESOPHAGEAL REFLUX PROPHYLAXIS
  4. PANTOPRAZOL?RATIOPHARM 20MG [Suspect]
     Active Substance: PANTOPRAZOLE SODIUM
     Indication: GASTROOESOPHAGEAL REFLUX PROPHYLAXIS
     Dosage: PANTOPRAZOL?RATIOPHARM 20MG
     Route: 065
  5. PANTOPRAZOL [Interacting]
     Active Substance: PANTOPRAZOLE SODIUM
     Indication: PROPHYLAXIS
     Route: 065
  6. PANTOPRAZOL NYC [Interacting]
     Active Substance: PANTOPRAZOLE SODIUM
     Indication: GASTROOESOPHAGEAL REFLUX PROPHYLAXIS
     Route: 065
  7. PANTOPRAZOL NYC [Interacting]
     Active Substance: PANTOPRAZOLE SODIUM
     Indication: PROPHYLAXIS
  8. PANTOPRAZOL?RATIOPHARM 20MG [Interacting]
     Active Substance: PANTOPRAZOLE SODIUM
     Indication: PROPHYLAXIS
  9. RATIOPHARM VITAMIN B1 [Interacting]
     Active Substance: THIAMINE HYDROCHLORIDE
     Dosage: 50 MG
     Route: 065

REACTIONS (8)
  - Arthropathy [Unknown]
  - Muscle atrophy [Unknown]
  - Vitamin B1 deficiency [Unknown]
  - Mobility decreased [Unknown]
  - Muscle strength abnormal [Unknown]
  - Drug interaction [Unknown]
  - Malabsorption [Unknown]
  - Tendon rupture [Unknown]

NARRATIVE: CASE EVENT DATE: 2018
